FAERS Safety Report 9706374 (Version 1)
Quarter: 2013Q4

REPORT INFORMATION
  Report Type: Spontaneous
  Country: US (occurrence: US)
  Receive Date: 20131125
  Receipt Date: 20131125
  Transmission Date: 20140711
  Serious: No
  Sender: FDA-Public Use
  Company Number: US-BIOGENIDEC-2013BI112145

PATIENT
  Sex: Female

DRUGS (3)
  1. TYSABRI [Suspect]
     Indication: MULTIPLE SCLEROSIS
     Route: 042
     Dates: start: 20090417, end: 20101006
  2. GABAPENTIN [Concomitant]
     Indication: SCIATICA
     Dates: start: 2010
  3. TRAMADOL [Concomitant]
     Indication: SCIATICA
     Dates: start: 2010

REACTIONS (1)
  - Headache [Recovered/Resolved]
